FAERS Safety Report 7386027-9 (Version None)
Quarter: 2011Q1

REPORT INFORMATION
  Report Type: 
  Country: None (occurrence: None)
  Receive Date: 20110331
  Receipt Date: 20110317
  Transmission Date: 20110831
  Serious: Yes (Hospitalization)
  Sender: FDA-Public Use
  Company Number: US-ELI_LILLY_AND_COMPANY-US201103005796

PATIENT
  Sex: Female

DRUGS (21)
  1. POTASSIUM [Concomitant]
     Dosage: 40 MEQ, TID
  2. CLONAPINE [Concomitant]
     Dosage: 0.5 MG, TID
  3. ACARBOSE [Concomitant]
     Dosage: 75 MG, QID
  4. PROTONIX [Concomitant]
     Dosage: 40 MG, BID
  5. VITAMIN E                            /001105/ [Concomitant]
     Dosage: 400 MG, BID
  6. STOOL SOFTENER [Concomitant]
  7. WELLBUTRIN [Concomitant]
     Dosage: 300 MG, EACH EVENING
  8. OSCAL [Concomitant]
     Dosage: 2000 MG, QD
  9. ESTRADIOL [Concomitant]
     Dosage: 1 MG, QD
  10. TIZANIDINE [Concomitant]
     Dosage: 4 MG, PRN
  11. SEPTRA [Concomitant]
     Dosage: UNK, BID
  12. MORPHINE [Concomitant]
     Dosage: 10 MG, TID
  13. SIMVASTATIN [Concomitant]
     Dosage: 20 MG, QD
  14. COREG [Concomitant]
     Dosage: 12.5 MG, BID
  15. IMMUNE GLOBULIN INTRAVENOUS (HUMAN) [Concomitant]
     Dosage: UNK, WEEKLY (1/W)
     Route: 058
  16. NORCO [Concomitant]
     Indication: FIBROMYALGIA
     Dosage: 5 MG, TID
  17. FUROSEMIDE [Concomitant]
     Dosage: 80 MG, TID
  18. VITAMIN D [Concomitant]
     Dosage: 1000 IU, QD
  19. SPIRONOLACTONE [Concomitant]
     Dosage: 50 MG, TID
  20. FORTEO [Suspect]
     Indication: OSTEOPOROSIS
     Dosage: 20 UG, QD
  21. VITAMIN B COMPLEX CAP [Concomitant]
     Dosage: UNK, QD

REACTIONS (4)
  - HYPOAESTHESIA [None]
  - ARTHROPATHY [None]
  - POST PROCEDURAL INFECTION [None]
  - POST PROCEDURAL COMPLICATION [None]
